FAERS Safety Report 10666290 (Version 8)
Quarter: 2015Q4

REPORT INFORMATION
  Report Type: Report from Study
  Country: KR (occurrence: KR)
  Receive Date: 20141220
  Receipt Date: 20151119
  Transmission Date: 20160304
  Serious: Yes (Hospitalization)
  Sender: FDA-Public Use
  Company Number: KR-ROCHE-1509011

PATIENT
  Age: 60 Year
  Sex: Male
  Weight: 37.5 kg

DRUGS (43)
  1. TRASTUZUMAB [Suspect]
     Active Substance: TRASTUZUMAB
     Indication: HER-2 POSITIVE GASTRIC CANCER
     Dosage: LOADING DOSE, PER PROTOCOL
     Route: 042
     Dates: start: 20140806
  2. TRASTUZUMAB [Suspect]
     Active Substance: TRASTUZUMAB
     Dosage: MAINTAINANCE DOSE, MOST RECENT DOSE ON 09/DEC/2014
     Route: 042
  3. EMEND [Concomitant]
     Active Substance: APREPITANT
     Indication: NAUSEA
     Route: 048
     Dates: start: 20140806, end: 20141209
  4. LASIX [Concomitant]
     Active Substance: FUROSEMIDE
     Indication: HYPERVOLAEMIA
     Route: 042
     Dates: start: 20140905, end: 20141209
  5. DUPHALAC-EASY [Concomitant]
     Indication: CONSTIPATION
     Route: 048
     Dates: start: 20141023, end: 20141214
  6. ROBAVIN [Concomitant]
     Dosage: INDICATION: RESPIRATORY SYNCYTIAL VIRUS
     Route: 048
     Dates: start: 20141220, end: 20141225
  7. NEXIUM [Concomitant]
     Active Substance: ESOMEPRAZOLE MAGNESIUM
     Indication: GASTRITIS
     Route: 048
     Dates: start: 20141218, end: 20150102
  8. CISPLATIN. [Suspect]
     Active Substance: CISPLATIN
     Indication: HER-2 POSITIVE GASTRIC CANCER
     Dosage: MOST RECENT DOSE PRIOR TO EVENT ONSET:09/DEC/2014
     Route: 042
     Dates: start: 20140806
  9. EMEND [Concomitant]
     Active Substance: APREPITANT
     Route: 048
     Dates: start: 20141210, end: 20141211
  10. MAGNESIUM SULFATE. [Concomitant]
     Active Substance: MAGNESIUM SULFATE
     Indication: ELECTROLYTE IMBALANCE
     Route: 042
     Dates: start: 20140905, end: 20141209
  11. PENIRAMIN [Concomitant]
     Indication: TRANSFUSION
     Route: 042
     Dates: start: 20141215, end: 20141215
  12. TRIDOL (SOUTH KOREA) [Concomitant]
     Indication: ABDOMINAL PAIN
     Route: 048
     Dates: start: 20141226, end: 20141230
  13. WINUF PERI [Concomitant]
     Indication: DECREASED APPETITE
     Route: 042
     Dates: start: 20141215, end: 20141223
  14. PANTOLOC [Concomitant]
     Active Substance: PANTOPRAZOLE SODIUM
     Indication: DYSPEPSIA
     Route: 048
     Dates: start: 20140717, end: 20141214
  15. PERTUZUMAB [Suspect]
     Active Substance: PERTUZUMAB
     Indication: HER-2 POSITIVE GASTRIC CANCER
     Dosage: MOST RECENT DOSE PRIOR TO EVENT ONSET:09/DEC/2014
     Route: 042
     Dates: start: 20140806, end: 20141209
  16. DEXAMETHASONE. [Concomitant]
     Active Substance: DEXAMETHASONE
     Indication: VOMITING
     Route: 048
     Dates: start: 20141114, end: 20141116
  17. DUPHALAC-EASY [Concomitant]
     Dosage: SELECT IF ONGOING=NO
     Route: 048
     Dates: start: 20141219, end: 20141219
  18. IRCODON [Concomitant]
     Indication: ABDOMINAL PAIN
     Route: 048
     Dates: start: 20141120, end: 20141214
  19. ZANTAC [Concomitant]
     Active Substance: RANITIDINE HYDROCHLORIDE
     Indication: GASTRITIS
     Route: 048
     Dates: start: 20141114, end: 20141116
  20. PHOSTEN [Concomitant]
     Indication: HYPOPHOSPHATAEMIA
     Route: 042
     Dates: start: 20141216, end: 20141222
  21. OLIMEL N9E [Concomitant]
     Indication: DECREASED APPETITE
     Route: 042
     Dates: start: 20141224, end: 20141225
  22. CAPECITABINE. [Suspect]
     Active Substance: CAPECITABINE
     Indication: HER-2 POSITIVE GASTRIC CANCER
     Dosage: DATE OF MOST RECENT DOSE: 12/DEC/2014
     Route: 048
     Dates: start: 20140806
  23. SODIUM BICARBONATE. [Concomitant]
     Active Substance: SODIUM BICARBONATE
     Indication: STOMATITIS
     Route: 050
     Dates: start: 20140805
  24. DUROGESIC [Concomitant]
     Active Substance: FENTANYL
     Indication: ABDOMINAL PAIN
     Route: 062
     Dates: start: 20141120, end: 20141208
  25. MAGNESIUM OXIDE. [Concomitant]
     Active Substance: MAGNESIUM OXIDE
     Indication: CONSTIPATION
     Route: 048
     Dates: start: 20141218, end: 20141218
  26. DUPHALAC-EASY [Concomitant]
     Indication: CONSTIPATION
     Route: 048
     Dates: start: 20141219, end: 20141219
  27. ATIVAN [Concomitant]
     Active Substance: LORAZEPAM
     Indication: INSOMNIA
     Route: 042
     Dates: start: 20141220, end: 20141225
  28. PACKED RBC [Concomitant]
     Indication: ANAEMIA
     Dosage: DOSE: 2 UNITS
     Route: 042
     Dates: start: 20141215, end: 20141215
  29. PACKED RBC [Concomitant]
     Dosage: DOSE: 1 UNITS
     Route: 042
     Dates: start: 20141224, end: 20141224
  30. EMEND [Concomitant]
     Active Substance: APREPITANT
     Indication: VOMITING
     Route: 048
     Dates: start: 20141114, end: 20141115
  31. DEXAMETHASONE. [Concomitant]
     Active Substance: DEXAMETHASONE
     Indication: NAUSEA
     Route: 042
     Dates: start: 20140806, end: 20141209
  32. NASEA [Concomitant]
     Active Substance: RAMOSETRON HYDROCHLORIDE
     Indication: VOMITING
     Route: 042
     Dates: start: 20140806, end: 20141209
  33. MUTEN [Concomitant]
     Indication: PRODUCTIVE COUGH
     Route: 048
     Dates: start: 20141107, end: 20141214
  34. MATRIFEN [Concomitant]
     Active Substance: FENTANYL
     Indication: ABDOMINAL PAIN
     Route: 062
     Dates: start: 20141220
  35. BEECOM HEXA [Concomitant]
     Indication: DECREASED APPETITE
     Route: 042
     Dates: start: 20141215, end: 20141215
  36. ROCEPHIN [Concomitant]
     Active Substance: CEFTRIAXONE SODIUM
     Dosage: INDICATION: RESPIRATORY SYNCYTIAL VIRUS
     Route: 042
     Dates: start: 20141216, end: 20141218
  37. CAPECITABINE. [Suspect]
     Active Substance: CAPECITABINE
     Route: 048
  38. DEXAMETHASONE. [Concomitant]
     Active Substance: DEXAMETHASONE
     Route: 048
     Dates: start: 20141210, end: 20141212
  39. NASEA [Concomitant]
     Active Substance: RAMOSETRON HYDROCHLORIDE
     Indication: NAUSEA
  40. FEROBA [Concomitant]
     Indication: ANAEMIA
     Route: 048
     Dates: start: 20140724, end: 20141214
  41. ZANTAC [Concomitant]
     Active Substance: RANITIDINE HYDROCHLORIDE
     Route: 048
     Dates: start: 20141210, end: 20141212
  42. HARNAL [Concomitant]
     Active Substance: TAMSULOSIN HYDROCHLORIDE
     Indication: DYSURIA
     Route: 048
     Dates: start: 20141223
  43. TRAPHEN [Concomitant]
     Indication: ABDOMINAL PAIN
     Route: 048
     Dates: start: 20141223, end: 20150211

REACTIONS (2)
  - Pneumonia [Recovered/Resolved]
  - Obstruction gastric [Recovered/Resolved]

NARRATIVE: CASE EVENT DATE: 20141214
